FAERS Safety Report 16377545 (Version 2)
Quarter: 2019Q2

REPORT INFORMATION
  Report Type: Spontaneous
  Country: US (occurrence: US)
  Receive Date: 20190531
  Receipt Date: 20190605
  Transmission Date: 20190711
  Serious: No
  Sender: FDA-Public Use
  Company Number: US-PFIZER INC-2019232800

PATIENT
  Age: 66 Year
  Sex: Female

DRUGS (1)
  1. SUNITINIB MALATE. [Suspect]
     Active Substance: SUNITINIB MALATE
     Indication: TRANSITIONAL CELL CARCINOMA
     Dosage: 50 MG, CYCLIC (DAILY, 4 WEEKS ON, 2 WEEKS OFF/1 WEEK ON 1 WEEK OFF)
     Route: 048
     Dates: start: 20190314

REACTIONS (4)
  - Product use in unapproved indication [Unknown]
  - Rash [Recovering/Resolving]
  - Stomatitis [Recovering/Resolving]
  - Off label use [Unknown]

NARRATIVE: CASE EVENT DATE: 20190314
